FAERS Safety Report 14035686 (Version 1)
Quarter: 2017Q4

REPORT INFORMATION
  Report Type: Spontaneous
  Country: US (occurrence: US)
  Receive Date: 20171003
  Receipt Date: 20171003
  Transmission Date: 20180321
  Serious: No
  Sender: FDA-Public Use
  Company Number: US-AMGEN-USASP2016139407

PATIENT

DRUGS (3)
  1. XGEVA [Suspect]
     Active Substance: DENOSUMAB
     Indication: METASTASES TO BONE
     Dosage: UNK
     Route: 065
  2. IBRANCE [Concomitant]
     Active Substance: PALBOCICLIB
     Route: 065
  3. FEMARA [Concomitant]
     Active Substance: LETROZOLE
     Route: 065

REACTIONS (3)
  - Drug ineffective [Unknown]
  - Weight decreased [Unknown]
  - Eating disorder [Unknown]

NARRATIVE: CASE EVENT DATE: 2015
